FAERS Safety Report 10031978 (Version 1)
Quarter: 2014Q1

REPORT INFORMATION
  Report Type: Spontaneous
  Country: US (occurrence: US)
  Receive Date: 20140324
  Receipt Date: 20140324
  Transmission Date: 20141002
  Serious: No
  Sender: FDA-Public Use
  Company Number: US-TEVA-470835USA

PATIENT
  Age: 35 Year
  Sex: Female

DRUGS (2)
  1. COPAXONE [Suspect]
     Indication: MULTIPLE SCLEROSIS
     Dates: end: 2013
  2. COPAXONE [Suspect]
     Dates: start: 201312

REACTIONS (2)
  - Malaise [Unknown]
  - Depression [Unknown]
